FAERS Safety Report 4384329-1 (Version None)
Quarter: 2004Q2

REPORT INFORMATION
  Report Type: 
  Country: None (occurrence: None)
  Receive Date: 20040621
  Receipt Date: 20040427
  Transmission Date: 20050107
  Serious: Yes (Other)
  Sender: FDA-Public Use
  Company Number: 2004023911

PATIENT
  Age: 72 Year
  Sex: Male

DRUGS (4)
  1. DOXAZOSIN (DOXAZOSIN) [Suspect]
     Indication: BENIGN PROSTATIC HYPERPLASIA
     Dosage: 2 MG (1 IN 1 D), ORAL
     Route: 048
     Dates: start: 19990101
  2. ATENOLOL [Concomitant]
  3. AMILORIDE W/HYDROCHLOROTHIAZIDE [Concomitant]
  4. ANTIDEPRESSANTS [Concomitant]

REACTIONS (1)
  - INTERVERTEBRAL DISC PROTRUSION [None]
